FAERS Safety Report 7929417-5 (Version None)
Quarter: 2011Q4

REPORT INFORMATION
  Report Type: 
  Country: None (occurrence: None)
  Receive Date: 20111121
  Receipt Date: 20111116
  Transmission Date: 20120403
  Serious: No
  Sender: FDA-Public Use
  Company Number: US-BIOGENIDEC-2011BI043913

PATIENT
  Age: 30 Year
  Sex: Female

DRUGS (1)
  1. TYSABRI [Suspect]
     Indication: MULTIPLE SCLEROSIS
     Route: 042
     Dates: start: 20111010

REACTIONS (8)
  - NAUSEA [None]
  - VISUAL ACUITY REDUCED [None]
  - FATIGUE [None]
  - HEADACHE [None]
  - PRURITUS GENERALISED [None]
  - CHEST PAIN [None]
  - PAIN IN EXTREMITY [None]
  - SLUGGISHNESS [None]
